APPROVED DRUG PRODUCT: HYDROXYZINE
Active Ingredient: HYDROXYZINE HYDROCHLORIDE
Strength: 50MG/ML
Dosage Form/Route: INJECTABLE;INJECTION
Application: A085551 | Product #002
Applicant: BAXTER HEALTHCARE CORP ANESTHESIA AND CRITICAL CARE
Approved: Approved Prior to Jan 1, 1982 | RLD: No | RS: No | Type: DISCN